FAERS Safety Report 9953954 (Version 2)
Quarter: 2014Q1

REPORT INFORMATION
  Report Type: Spontaneous
  Country: AT (occurrence: AT)
  Receive Date: 20140304
  Receipt Date: 20140311
  Transmission Date: 20141002
  Serious: Yes (Other)
  Sender: FDA-Public Use
  Company Number: AT-PFIZER INC-2014059367

PATIENT
  Age: 73 Year
  Sex: Female

DRUGS (27)
  1. NEURONTIN [Suspect]
     Dosage: 600 MG, DAILY
     Dates: start: 201301, end: 20130609
  2. NEURONTIN [Suspect]
     Dosage: 300 MG, 1X/DAY
     Dates: start: 20130610, end: 20130616
  3. XANOR [Suspect]
     Dosage: 1 MG, 1X/DAY
     Dates: start: 20130427, end: 20130522
  4. XANOR [Suspect]
     Dosage: 1.25 MG, 1X/DAY
     Dates: start: 20130523, end: 20130602
  5. XANOR [Suspect]
     Dosage: 1 MG, 1X/DAY
     Dates: start: 20130603, end: 20130603
  6. XANOR [Suspect]
     Dosage: 1.25 MG, 1X/DAY
     Dates: start: 20130604, end: 20130616
  7. PANTOLOC [Suspect]
     Dosage: 20 MG, 1X/DAY
     Route: 065
  8. DEPAKINE CHRONO [Suspect]
     Dosage: 900 MG, 1X/DAY
     Dates: start: 201301, end: 20130605
  9. DEPAKINE CHRONO [Suspect]
     Dosage: 1200 MG, 1X/DAY
     Dates: start: 20130606, end: 20130630
  10. CYMBALTA [Suspect]
     Dosage: 60 MG, DAILY
     Dates: start: 201301, end: 20130619
  11. TOLVON [Suspect]
     Dosage: 60 MG, 1X/DAY
     Dates: start: 201301, end: 20130623
  12. SEROQUEL [Suspect]
     Dosage: 100 MG, 1X/DAY
     Dates: start: 20130521, end: 20130521
  13. SEROQUEL [Suspect]
     Dosage: 150 MG, 1X/DAY
     Dates: start: 20130522, end: 20130522
  14. SEROQUEL [Suspect]
     Dosage: 100 MG, 1X/DAY
     Dates: start: 20130523, end: 20130524
  15. SEROQUEL [Suspect]
     Dosage: 150 MG, 1X/DAY
     Dates: start: 20130527, end: 20130527
  16. SEROQUEL [Suspect]
     Dosage: 250 MG, 1X/DAY
     Dates: start: 20130528, end: 20130528
  17. SEROQUEL [Suspect]
     Dosage: 300 MG, 1X/DAY
     Dates: start: 20130529, end: 20130603
  18. PSYCHOPAX [Concomitant]
     Dosage: 20 MG, 1X/DAY
     Dates: start: 20130427, end: 20130518
  19. PSYCHOPAX [Concomitant]
     Dosage: 10 MG, 1X/DAY
     Dates: start: 20130519, end: 20130519
  20. PSYCHOPAX [Concomitant]
     Dosage: 5 MG, 1X/DAY
     Dates: start: 20130520, end: 20130520
  21. ULCOGANT [Concomitant]
     Dosage: 3 MG, 1X/DAY
     Dates: start: 20130527, end: 20130527
  22. THROMBO ASS [Concomitant]
     Dosage: 100 MG, 1X/DAY
     Dates: start: 20130518
  23. ZYPREXA [Concomitant]
     Dosage: 2.5 MG, 1X/DAY
     Dates: start: 20130524, end: 20130525
  24. VALDOXAN [Concomitant]
     Dosage: 25 MG, 1X/DAY
     Dates: start: 20130524, end: 20130527
  25. VALDOXAN [Concomitant]
     Dosage: 50 MG, 1X/DAY
     Dates: start: 20130528, end: 20131103
  26. ZOLDEM [Concomitant]
     Dosage: 10 MG, 1X/DAY
     Dates: end: 20130608
  27. EUTHYROX [Concomitant]
     Dosage: 50 UG, 1X/DAY
     Dates: end: 20130713

REACTIONS (2)
  - Dry mouth [Recovered/Resolved]
  - Lip blister [Recovered/Resolved]
